FAERS Safety Report 6504739-3 (Version None)
Quarter: 2009Q4

REPORT INFORMATION
  Report Type: 
  Country: None (occurrence: None)
  Receive Date: 20091216
  Receipt Date: 20091204
  Transmission Date: 20100525
  Serious: Yes (Other)
  Sender: FDA-Public Use
  Company Number: 2009SP039800

PATIENT
  Age: 35 Year
  Sex: Male

DRUGS (3)
  1. MIRTAZAPINE [Suspect]
     Indication: ANXIETY DISORDER
     Dosage: 15 MG;QD;PO
     Route: 048
  2. NOVALGIN (METAMIZOLE SODIUM) [Suspect]
     Indication: PAIN
     Dosage: 1 DF;QID;PO
     Route: 048
  3. RISPERDAL [Suspect]
     Indication: DEPRESSION
     Dosage: 0.5 MG;BID;PO
     Route: 048

REACTIONS (1)
  - RHABDOMYOLYSIS [None]
